FAERS Safety Report 15143362 (Version 2)
Quarter: 2018Q3

REPORT INFORMATION
  Report Type: Report from Study
  Country: US (occurrence: US)
  Receive Date: 20180713
  Receipt Date: 20180717
  Transmission Date: 20181010
  Serious: Yes (Hospitalization, Other)
  Sender: FDA-Public Use
  Company Number: US-GILEAD-2018-0349868

PATIENT
  Age: 33 Year
  Sex: Female

DRUGS (26)
  1. AZTREONAM LYSINE [Suspect]
     Active Substance: AZTREONAM LYSINE
     Indication: CYSTIC FIBROSIS
     Dosage: 75 MG, TID
     Route: 055
     Dates: start: 20150323
  2. ALBUTEROL                          /00139501/ [Concomitant]
     Active Substance: ALBUTEROL
  3. AZITHROMYCIN ANHYDROUS. [Concomitant]
     Active Substance: AZITHROMYCIN ANHYDROUS
  4. TOBRAMYCIN. [Concomitant]
     Active Substance: TOBRAMYCIN
  5. MULTI?VITAMINS VITAFIT [Concomitant]
     Active Substance: VITAMINS
  6. NASONEX [Concomitant]
     Active Substance: MOMETASONE FUROATE
  7. FERREX [Concomitant]
     Active Substance: FERRIC POLYSACCHARIDE COMPLEX
  8. MEPHYTON [Concomitant]
     Active Substance: PHYTONADIONE
  9. NOVOLOG [Concomitant]
     Active Substance: INSULIN ASPART
  10. SINGULAIR [Concomitant]
     Active Substance: MONTELUKAST SODIUM
  11. PULMOZYME [Concomitant]
     Active Substance: DORNASE ALFA
  12. HYDROXYZINE [Concomitant]
     Active Substance: HYDROXYZINE HYDROCHLORIDE
  13. OMEPRAZOLE. [Concomitant]
     Active Substance: OMEPRAZOLE
  14. PANCRELIPASE. [Concomitant]
     Active Substance: PANCRELIPASE
  15. VANCOMYCIN [Concomitant]
     Active Substance: VANCOMYCIN
  16. SUDAFED [Concomitant]
     Active Substance: PSEUDOEPHEDRINE HYDROCHLORIDE
  17. SYMBICORT [Concomitant]
     Active Substance: BUDESONIDE\FORMOTEROL FUMARATE DIHYDRATE
  18. GABAPENTIN. [Concomitant]
     Active Substance: GABAPENTIN
  19. LEVOTHYROXINE. [Concomitant]
     Active Substance: LEVOTHYROXINE
  20. VITAMIN E                          /00110501/ [Concomitant]
     Active Substance: TOCOPHEROL
  21. CALCIUM [Concomitant]
     Active Substance: CALCIUM
  22. LANTUS [Concomitant]
     Active Substance: INSULIN GLARGINE
  23. METOCLOPRAM [Concomitant]
     Active Substance: METOCLOPRAMIDE
  24. BUPROPION. [Concomitant]
     Active Substance: BUPROPION
  25. RANITIDINE. [Concomitant]
     Active Substance: RANITIDINE
  26. XOPENEX [Concomitant]
     Active Substance: LEVALBUTEROL HYDROCHLORIDE

REACTIONS (1)
  - Intestinal obstruction [Unknown]
